FAERS Safety Report 7631538-1 (Version None)
Quarter: 2011Q3

REPORT INFORMATION
  Report Type: 
  Country: None (occurrence: None)
  Receive Date: 20110725
  Receipt Date: 20110719
  Transmission Date: 20111222
  Serious: Yes (Hospitalization)
  Sender: FDA-Public Use
  Company Number: US-SANOFI-AVENTIS-2011SA040835

PATIENT
  Age: 80 Year
  Sex: Female

DRUGS (7)
  1. CRESTOR [Concomitant]
  2. MULTI-VITAMINS [Concomitant]
  3. DILTIAZEM [Concomitant]
  4. HYDROCHLOROTHIAZIDE [Concomitant]
  5. ANTITHROMBOTIC AGENTS [Suspect]
     Route: 051
  6. LOVENOX [Suspect]
     Indication: THROMBOSIS PROPHYLAXIS
     Route: 051
     Dates: start: 20101001, end: 20101217
  7. CALCIUM CARBONATE [Concomitant]

REACTIONS (4)
  - LOSS OF CONSCIOUSNESS [None]
  - FALL [None]
  - EPISTAXIS [None]
  - INJECTION SITE HAEMORRHAGE [None]
